FAERS Safety Report 4465272-6 (Version None)
Quarter: 2004Q4

REPORT INFORMATION
  Report Type: 
  Country: None (occurrence: None)
  Receive Date: 20041004
  Receipt Date: 20040929
  Transmission Date: 20050328
  Serious: Yes (Hospitalization)
  Sender: FDA-Public Use
  Company Number: US-JNJFOC-20040909897

PATIENT
  Sex: Female

DRUGS (2)
  1. REMICADE [Suspect]
     Route: 042
  2. METHOTREXATE [Concomitant]

REACTIONS (2)
  - PNEUMOCYSTIS CARINII PNEUMONIA [None]
  - PULMONARY EMBOLISM [None]
